FAERS Safety Report 9029252 (Version 8)
Quarter: 2013Q4

REPORT INFORMATION
  Report Type: Report from Study
  Country: RU (occurrence: RU)
  Receive Date: 20130125
  Receipt Date: 20131220
  Transmission Date: 20140711
  Serious: Yes (Other)
  Sender: FDA-Public Use
  Company Number: RU-MERCK-1301RUS009199

PATIENT
  Age: 61 Year
  Sex: Female
  Weight: 77.4 kg

DRUGS (12)
  1. BOCEPREVIR [Suspect]
     Indication: CHRONIC HEPATITIS C
     Dosage: UNK UNK, TID
     Route: 048
     Dates: start: 20120503, end: 20121208
  2. PEGINTRON [Suspect]
     Indication: CHRONIC HEPATITIS C
     Dosage: 150MCG (0.5ML), QW
     Route: 058
     Dates: start: 20120402, end: 20120624
  3. PEGINTRON [Suspect]
     Dosage: 80 MICROGRAM, QW
     Route: 058
     Dates: start: 20120625, end: 20121208
  4. RIBAVIRIN [Suspect]
     Indication: CHRONIC HEPATITIS C
     Dosage: 600 MG, BID
     Route: 048
     Dates: start: 20120402, end: 20120527
  5. RIBAVIRIN [Suspect]
     Dosage: 600 MG DAILY
     Route: 048
     Dates: start: 20120528, end: 20120628
  6. RIBAVIRIN [Suspect]
     Dosage: 600 MG, BID
     Route: 048
     Dates: start: 20120629, end: 20120630
  7. RIBAVIRIN [Suspect]
     Dosage: 600 MG DAILY
     Route: 048
     Dates: start: 20120701, end: 20120722
  8. RIBAVIRIN [Suspect]
     Dosage: 600 MG, BID
     Route: 048
     Dates: start: 20120723, end: 20120726
  9. RIBAVIRIN [Suspect]
     Dosage: 600 MG DAILY
     Route: 048
     Dates: start: 20120727, end: 20120810
  10. RIBAVIRIN [Suspect]
     Dosage: 600 MG, BID
     Route: 048
     Dates: start: 20120811, end: 20120919
  11. RIBAVIRIN [Suspect]
     Dosage: 600 MG DAILY
     Route: 048
     Dates: start: 20120920, end: 20121019
  12. RIBAVIRIN [Suspect]
     Dosage: 600 MG, BID
     Route: 048
     Dates: start: 20121020, end: 20121208

REACTIONS (1)
  - Neutropenia [Recovered/Resolved]
